FAERS Safety Report 5420743-0 (Version None)
Quarter: 2007Q3

REPORT INFORMATION
  Report Type: 
  Country: None (occurrence: None)
  Receive Date: 20070821
  Receipt Date: 20060912
  Transmission Date: 20080115
  Serious: No
  Sender: FDA-Public Use
  Company Number: US-BRISTOL-MYERS SQUIBB COMPANY-13506357

PATIENT
  Sex: Female

DRUGS (2)
  1. ESTRACE [Suspect]
     Dates: start: 20020101
  2. ESTRACE [Suspect]

REACTIONS (4)
  - BLOOD PRESSURE DECREASED [None]
  - BODY TEMPERATURE DECREASED [None]
  - FLUSHING [None]
  - HOT FLUSH [None]
